FAERS Safety Report 11259339 (Version 1)
Quarter: 2015Q3

REPORT INFORMATION
  Report Type: Spontaneous
  Country: US (occurrence: None)
  Receive Date: 20150709
  Receipt Date: 20150709
  Transmission Date: 20151125
  Serious: Yes (Hospitalization, Other)
  Sender: FDA-Public Use
  Company Number: None

PATIENT
  Age: 74 Year
  Sex: Female
  Weight: 100 kg

DRUGS (12)
  1. ALBUTEROL INHALATION [Concomitant]
     Active Substance: ALBUTEROL
  2. ZOSYN [Suspect]
     Active Substance: PIPERACILLIN SODIUM\TAZOBACTAM SODIUM
     Indication: INFECTION
     Route: 042
     Dates: start: 20150429, end: 20150510
  3. CEFTAROLINE [Suspect]
     Active Substance: CEFTAROLINE
     Indication: STOMATITIS
     Route: 042
     Dates: start: 20150430, end: 20150510
  4. ACYCLOVIR. [Concomitant]
     Active Substance: ACYCLOVIR
  5. CEFTAROLINE [Suspect]
     Active Substance: CEFTAROLINE
     Indication: SKIN ULCER
     Route: 042
     Dates: start: 20150430, end: 20150510
  6. MICONAZOLE. [Concomitant]
     Active Substance: MICONAZOLE NITRATE
  7. HEPARIN [Concomitant]
     Active Substance: HEPARIN SODIUM
  8. IPRATROPIUM BROMIDE. [Concomitant]
     Active Substance: IPRATROPIUM BROMIDE
  9. CEFTAROLINE [Suspect]
     Active Substance: CEFTAROLINE
     Indication: INFECTION
     Route: 042
     Dates: start: 20150430, end: 20150510
  10. ESOMEPRAZOLE [Concomitant]
     Active Substance: ESOMEPRAZOLE
  11. ZOSYN [Suspect]
     Active Substance: PIPERACILLIN SODIUM\TAZOBACTAM SODIUM
     Indication: SKIN ULCER
     Route: 042
     Dates: start: 20150429, end: 20150510
  12. UREA. [Concomitant]
     Active Substance: UREA

REACTIONS (4)
  - Stomatitis [None]
  - Stevens-Johnson syndrome [None]
  - Skin exfoliation [None]
  - Erythema [None]

NARRATIVE: CASE EVENT DATE: 20150511
